FAERS Safety Report 5534919-5 (Version None)
Quarter: 2007Q4

REPORT INFORMATION
  Report Type: 
  Country: None (occurrence: None)
  Receive Date: 20071120
  Receipt Date: 20070928
  Transmission Date: 20080405
  Serious: No
  Sender: FDA-Public Use
  Company Number: WAES 0710USA00136

PATIENT
  Age: 74 Year
  Sex: Male

DRUGS (13)
  1. JANUVIA [Suspect]
     Indication: DIABETES MELLITUS
     Dosage: 100 MG/DAILY/PO
     Route: 048
     Dates: start: 20070927, end: 20070928
  2. ATIVAN [Concomitant]
  3. COZAAR [Concomitant]
  4. LASIX [Concomitant]
  5. OXYCONTIN [Concomitant]
  6. ZETIA [Concomitant]
  7. [THERAPY UNSPECIFIED] [Concomitant]
  8. AMIODARONE HCL [Concomitant]
  9. ASPIRIN [Concomitant]
  10. DOCUSATE CALCIUM [Concomitant]
  11. GEMFIBROZIL [Concomitant]
  12. METOPROLOL TARTRATE [Concomitant]
  13. POTASSIUM CHLORIDE [Concomitant]

REACTIONS (5)
  - ASTHENIA [None]
  - DIZZINESS [None]
  - DYSPNOEA [None]
  - FATIGUE [None]
  - STOMACH DISCOMFORT [None]
